FAERS Safety Report 15272501 (Version 1)
Quarter: 2018Q3

REPORT INFORMATION
  Report Type: Report from Study
  Country: NL (occurrence: NL)
  Receive Date: 20180813
  Receipt Date: 20180813
  Transmission Date: 20181010
  Serious: Yes (Hospitalization)
  Sender: FDA-Public Use
  Company Number: NL-ASTRAZENECA-2018SF01445

PATIENT
  Age: 78 Year
  Sex: Male

DRUGS (3)
  1. OLAPARIB. [Suspect]
     Active Substance: OLAPARIB
     Indication: METASTATIC NEOPLASM
     Route: 048
     Dates: start: 20180724, end: 20180727
  2. APIXABAN [Concomitant]
     Active Substance: APIXABAN
     Dosage: 10 MG
     Dates: start: 2015
  3. PANTOZOL [Concomitant]
     Active Substance: PANTOPRAZOLE SODIUM
     Dosage: 40 MG

REACTIONS (1)
  - Stoma site haemorrhage [Unknown]

NARRATIVE: CASE EVENT DATE: 20180806
